FAERS Safety Report 4425564-3 (Version None)
Quarter: 2004Q3

REPORT INFORMATION
  Report Type: 
  Country: None (occurrence: None)
  Receive Date: 20040719
  Receipt Date: 20030926
  Transmission Date: 20050211
  Serious: Yes (Hospitalization)
  Sender: FDA-Public Use
  Company Number: 181319

PATIENT
  Age: 44 Year
  Sex: Female
  Weight: 107.9561 kg

DRUGS (8)
  1. AVONEX [Suspect]
     Indication: MULTIPLE SCLEROSIS
     Dosage: 30 MCG QW IM
     Route: 030
     Dates: start: 20020101, end: 20030101
  2. AVONEX [Suspect]
     Indication: MULTIPLE SCLEROSIS
     Dosage: 30 MCG QW IM
     Route: 030
     Dates: start: 20030901
  3. PROTONIX [Concomitant]
  4. DETROL [Concomitant]
  5. ZOLOFT [Concomitant]
  6. SOMA [Concomitant]
  7. PROVIGIL [Concomitant]
  8. NEURONTIN [Concomitant]

REACTIONS (8)
  - ANXIETY [None]
  - BALANCE DISORDER [None]
  - CHILLS [None]
  - DEPRESSION [None]
  - FEELING COLD [None]
  - INSOMNIA [None]
  - PYREXIA [None]
  - REFLUX GASTRITIS [None]
